FAERS Safety Report 13853487 (Version 1)
Quarter: 2017Q3

REPORT INFORMATION
  Report Type: Spontaneous
  Country: US (occurrence: US)
  Receive Date: 20170810
  Receipt Date: 20170810
  Transmission Date: 20171127
  Serious: No
  Sender: FDA-Public Use
  Company Number: None

PATIENT
  Age: 64 Year
  Sex: Male

DRUGS (1)
  1. ZEPATIER [Suspect]
     Active Substance: ELBASVIR\GRAZOPREVIR
     Dosage: 50/100MG
     Route: 048

REACTIONS (3)
  - Frequent bowel movements [None]
  - Insomnia [None]
  - Diarrhoea [None]

NARRATIVE: CASE EVENT DATE: 20170711
